FAERS Safety Report 9392973 (Version 1)
Quarter: 2013Q3

REPORT INFORMATION
  Report Type: Spontaneous
  Country: GB (occurrence: None)
  Receive Date: 20130705
  Receipt Date: 20130705
  Transmission Date: 20140515
  Serious: Yes (Other)
  Sender: FDA-Public Use
  Company Number: ENTC2013-0233

PATIENT
  Age: 76 Year
  Sex: Female

DRUGS (9)
  1. STALEVO [Suspect]
     Indication: PARKINSON^S DISEASE
  2. ROTIGOTINE [Suspect]
     Indication: PARKINSON^S DISEASE
     Dosage: 12 MG (12 MG, 1 IN 1D)
  3. ATROVASTATIN [Concomitant]
  4. CO-CODAMOL [Concomitant]
  5. FUROSEMIDE [Concomitant]
  6. METFORMIN [Concomitant]
  7. RAMIPRIL [Concomitant]
  8. RASAGILINE [Concomitant]
  9. SINEMET CR [Concomitant]

REACTIONS (4)
  - Fall [None]
  - Femoral neck fracture [None]
  - Agitation [None]
  - Refusal of treatment by patient [None]
